FAERS Safety Report 9258718 (Version 1)
Quarter: 2013Q2

REPORT INFORMATION
  Report Type: Report from Study
  Country: US (occurrence: US)
  Receive Date: 20130426
  Receipt Date: 20130426
  Transmission Date: 20140414
  Serious: Yes (Hospitalization)
  Sender: FDA-Public Use
  Company Number: US-ABBOTT-13P-163-1078926-00

PATIENT
  Age: 54 Year
  Sex: Female
  Weight: 97.61 kg

DRUGS (3)
  1. HUMIRA [Suspect]
     Indication: PSORIASIS
     Dates: start: 201210
  2. METFORMIN [Concomitant]
     Indication: DIABETES MELLITUS
  3. UNKNOWN ANTI-DEPRESSANTS [Concomitant]
     Indication: PRODUCT USED FOR UNKNOWN INDICATION

REACTIONS (3)
  - Memory impairment [Recovering/Resolving]
  - Cerebrovascular accident [Recovering/Resolving]
  - Fall [Recovered/Resolved]
